FAERS Safety Report 7019511-8 (Version None)
Quarter: 2010Q3

REPORT INFORMATION
  Report Type: 
  Country: None (occurrence: None)
  Receive Date: 20100923
  Receipt Date: 20100914
  Transmission Date: 20110219
  Serious: Yes (Other)
  Sender: FDA-Public Use
  Company Number: 700104

PATIENT
  Age: 54 Year
  Sex: Male
  Weight: 63 kg

DRUGS (4)
  1. (CALCIUM FOLINATE) [Suspect]
     Indication: PRODUCT USED FOR UNKNOWN INDICATION
     Dosage: 175 MG MILLIGRAM(S), INTRAVENOUS
     Route: 042
  2. OXALIPLATIN [Suspect]
     Indication: PRODUCT USED FOR UNKNOWN INDICATION
     Dosage: 160 MG MILLIGRAM(S), INTRAVENOUS
     Route: 042
     Dates: start: 20100621
  3. (DEXAMETHASONE) [Concomitant]
  4. (ONDANSETRON) [Concomitant]

REACTIONS (5)
  - ABDOMINAL PAIN [None]
  - COLD SWEAT [None]
  - PRURITUS [None]
  - RASH [None]
  - THROAT IRRITATION [None]
